FAERS Safety Report 8370717-5 (Version None)
Quarter: 2012Q2

REPORT INFORMATION
  Report Type: 
  Country: None (occurrence: None)
  Receive Date: 20120518
  Receipt Date: 20120511
  Transmission Date: 20120825
  Serious: Yes (Other)
  Sender: FDA-Public Use
  Company Number: US-FRI-1000030505

PATIENT
  Age: 65 Year
  Sex: Female

DRUGS (1)
  1. DALIRESP [Suspect]

REACTIONS (5)
  - FATIGUE [None]
  - VAGINAL HAEMORRHAGE [None]
  - VOMITING [None]
  - HEADACHE [None]
  - PAIN [None]
